FAERS Safety Report 7636551-6 (Version None)
Quarter: 2011Q3

REPORT INFORMATION
  Report Type: 
  Country: None (occurrence: None)
  Receive Date: 20110719
  Receipt Date: 20110705
  Transmission Date: 20111222
  Serious: Yes (Other)
  Sender: FDA-Public Use
  Company Number: JHP201100276

PATIENT
  Age: 45 Year
  Sex: Male

DRUGS (8)
  1. SUXAMETHONIUM (SUXAMETHONIUM) [Concomitant]
  2. NEOSTIGMINE (NEOSTIGMINE) [Concomitant]
  3. REMIFENTANIL (REMIFENTANIL) [Suspect]
     Indication: ANALGESIC THERAPY
     Dosage: 0.75 UG/KG/MIN, INTRAVENOUS
     Route: 042
  4. ISOFLURANE [Concomitant]
  5. KETALAR [Suspect]
     Indication: ANALGESIC THERAPY
     Dosage: 100 UG/KG/MIN FROM INCISION TO SUTURE - TOTAL 480 MG, INTRAVENOUS
     Route: 042
  6. PROPOFOL [Concomitant]
  7. MIDAZOLAM HCL [Concomitant]
  8. MIVACURIUM CHLORIDE (MIVACURIUM CHLORIDE) [Concomitant]

REACTIONS (2)
  - DELAYED RECOVERY FROM ANAESTHESIA [None]
  - BRONCHOSPASM [None]
